FAERS Safety Report 5588671-8 (Version None)
Quarter: 2007Q4

REPORT INFORMATION
  Report Type: 
  Country: None (occurrence: None)
  Receive Date: 20071211
  Receipt Date: 20071106
  Transmission Date: 20080405
  Serious: No
  Sender: FDA-Public Use
  Company Number: 002#2#2007-00286

PATIENT
  Sex: Male
  Weight: 79.3795 kg

DRUGS (7)
  1. NEUPRO [Suspect]
     Indication: BALANCE DISORDER
     Dosage: 2MG/24H,1 IN 1 D,TRANSDERMAL ; 4MG/24H,1 IN 1 D,TRANSDERMAL
     Route: 062
  2. NEUPRO [Suspect]
     Indication: PARKINSON'S DISEASE
     Dosage: 2MG/24H,1 IN 1 D,TRANSDERMAL ; 4MG/24H,1 IN 1 D,TRANSDERMAL
     Route: 062
  3. SINEMET [Concomitant]
  4. COUMADIN [Concomitant]
  5. LIPITOR [Concomitant]
  6. POTASSIUM CHLORIDE [Concomitant]
  7. DIURETICS [Concomitant]

REACTIONS (3)
  - HYPERSOMNIA [None]
  - INSOMNIA [None]
  - SOMNOLENCE [None]
